FAERS Safety Report 6643362-7 (Version None)
Quarter: 2010Q1

REPORT INFORMATION
  Report Type: 
  Country: None (occurrence: None)
  Receive Date: 20100319
  Receipt Date: 20100312
  Transmission Date: 20100710
  Serious: Yes (Hospitalization)
  Sender: FDA-Public Use
  Company Number: PHHO2010CA04067

PATIENT
  Sex: Female
  Weight: 67.5 kg

DRUGS (13)
  1. CERTICAN [Suspect]
     Indication: LIVER TRANSPLANT
     Dosage: 1 MG, BID
     Route: 048
     Dates: start: 20100308
  2. TACROLIMUS [Suspect]
     Indication: LIVER TRANSPLANT
     Dosage: 4 MG, BID
     Route: 048
     Dates: start: 20100202, end: 20100312
  3. ASPIRIN [Concomitant]
     Indication: PROPHYLAXIS
  4. DOMPERIDONE [Concomitant]
     Indication: NAUSEA
  5. HEPARIN [Concomitant]
     Indication: PROPHYLAXIS
  6. METFORMIN HYDROCHLORIDE [Concomitant]
     Indication: DIABETES MELLITUS
  7. METOPROLOL TARTRATE [Concomitant]
     Indication: HYPERTENSION
  8. RANITIDINE [Concomitant]
     Indication: PROPHYLAXIS
  9. CITALOPRAM [Concomitant]
     Indication: DEPRESSION
  10. METOCLOPRAMIDE [Concomitant]
     Indication: NAUSEA
  11. INSULIN [Concomitant]
     Indication: DIABETES MELLITUS
  12. MORPHINE [Concomitant]
     Indication: PAIN
  13. TYLENOL-500 [Concomitant]

REACTIONS (5)
  - COGNITIVE DISORDER [None]
  - DELIRIUM [None]
  - DEPRESSION [None]
  - RESPIRATORY FAILURE [None]
  - SEPSIS [None]
